FAERS Safety Report 4459532-2 (Version None)
Quarter: 2004Q3

REPORT INFORMATION
  Report Type: 
  Country: None (occurrence: None)
  Receive Date: 20040910
  Receipt Date: 20040607
  Transmission Date: 20050211
  Serious: No
  Sender: FDA-Public Use
  Company Number: 2004218196US

PATIENT
  Age: 58 Year
  Sex: Male

DRUGS (8)
  1. BEXTRA [Suspect]
     Indication: PSORIATIC ARTHROPATHY
     Dosage: SEE IMAGE
     Route: 048
     Dates: end: 20040101
  2. BEXTRA [Suspect]
     Indication: PSORIATIC ARTHROPATHY
     Dosage: SEE IMAGE
     Route: 048
     Dates: start: 20020101
  3. ASPIRIN [Concomitant]
  4. TYLENOL [Concomitant]
  5. PAXIL [Concomitant]
  6. NEURONTIN [Concomitant]
  7. VICODIN [Concomitant]
  8. ULTRAM [Concomitant]

REACTIONS (2)
  - ARTHROPATHY [None]
  - DRUG INEFFECTIVE [None]
